FAERS Safety Report 24992147 (Version 1)
Quarter: 2025Q1

REPORT INFORMATION
  Report Type: Spontaneous
  Country: DE (occurrence: DE)
  Receive Date: 20250220
  Receipt Date: 20250220
  Transmission Date: 20250408
  Serious: Yes (Hospitalization)
  Sender: CARA THERAPEUTICS
  Company Number: DE-BEH-2025196000

PATIENT

DRUGS (2)
  1. KORSUVA [Suspect]
     Active Substance: DIFELIKEFALIN ACETATE
     Indication: Pruritus
     Route: 042
     Dates: start: 202411
  2. KORSUVA [Suspect]
     Active Substance: DIFELIKEFALIN ACETATE
     Route: 042
     Dates: end: 202501

REACTIONS (2)
  - Fall [Recovered/Resolved]
  - Confusional state [Recovered/Resolved]
